FAERS Safety Report 4552754-1 (Version None)
Quarter: 2005Q1

REPORT INFORMATION
  Report Type: 
  Country: None (occurrence: None)
  Receive Date: 20050114
  Receipt Date: 20041222
  Transmission Date: 20050727
  Serious: Yes (Death, Hospitalization)
  Sender: FDA-Public Use
  Company Number: US-JNJFOC-20041006489

PATIENT
  Age: 86 Year
  Sex: Male

DRUGS (4)
  1. DITROPAN XL [Suspect]
     Route: 049
  2. DITROPAN XL [Suspect]
     Indication: NOCTURIA
     Route: 049
  3. DITROPAN XL [Suspect]
     Indication: BLADDER DISORDER
     Route: 049
  4. FLOMAX [Concomitant]

REACTIONS (11)
  - ASTHENIA [None]
  - CIRCULATORY COLLAPSE [None]
  - DECREASED APPETITE [None]
  - DISEASE PROGRESSION [None]
  - DYSPNOEA [None]
  - LOSS OF CONSCIOUSNESS [None]
  - PROSTATE CANCER [None]
  - PYREXIA [None]
  - TACHYCARDIA [None]
  - WEIGHT DECREASED [None]
  - WHEEZING [None]
